FAERS Safety Report 14595419 (Version 1)
Quarter: 2018Q1

REPORT INFORMATION
  Report Type: Spontaneous
  Country: US (occurrence: US)
  Receive Date: 20180302
  Receipt Date: 20180302
  Transmission Date: 20180509
  Serious: No
  Sender: FDA-Public Use
  Company Number: US-BIOGEN-2017BI00458827

PATIENT
  Sex: Male

DRUGS (2)
  1. AVONEX [Suspect]
     Active Substance: INTERFERON BETA-1A
     Indication: MULTIPLE SCLEROSIS
     Route: 030
     Dates: start: 19960128, end: 20131202
  2. AVONEX [Suspect]
     Active Substance: INTERFERON BETA-1A
     Route: 065

REACTIONS (6)
  - Influenza like illness [Unknown]
  - Memory impairment [Unknown]
  - Feeling abnormal [Unknown]
  - Pain [Unknown]
  - Irritability [Unknown]
  - Drug effect decreased [Unknown]
